FAERS Safety Report 4829949-2 (Version None)
Quarter: 2005Q4

REPORT INFORMATION
  Report Type: 
  Country: None (occurrence: None)
  Receive Date: 20051115
  Receipt Date: 20051107
  Transmission Date: 20060501
  Serious: Yes (Other)
  Sender: FDA-Public Use
  Company Number: GB-2005-020603

PATIENT
  Age: 44 Year
  Sex: Female
  Weight: 64 kg

DRUGS (2)
  1. MIRENA [Suspect]
     Indication: CONTRACEPTION
     Dosage: 1 D0SE, INTRA-UTERINE
     Route: 015
     Dates: start: 20050818
  2. BETAHISTINE (BETAHISTINE) [Concomitant]

REACTIONS (2)
  - CONDITION AGGRAVATED [None]
  - MENIERE'S DISEASE [None]
